FAERS Safety Report 20667017 (Version 1)
Quarter: 2022Q2

REPORT INFORMATION
  Report Type: Spontaneous
  Country: CA (occurrence: CA)
  Receive Date: 20220404
  Receipt Date: 20220404
  Transmission Date: 20220720
  Serious: Yes (Other)
  Sender: FDA-Public Use
  Company Number: CA-JNJFOC-20220363361

PATIENT
  Age: 51 Year
  Sex: Male

DRUGS (1)
  1. REMICADE [Suspect]
     Active Substance: INFLIXIMAB
     Indication: Crohn^s disease
     Route: 042

REACTIONS (9)
  - Uveitis [Unknown]
  - Anal fistula [Unknown]
  - Iritis [Unknown]
  - Fistula [Unknown]
  - Arthritis [Unknown]
  - Mucocutaneous disorder [Unknown]
  - Arthralgia [Unknown]
  - Condition aggravated [Unknown]
  - Pyrexia [Unknown]
